FAERS Safety Report 19511541 (Version 1)
Quarter: 2021Q3

REPORT INFORMATION
  Report Type: Report from Study
  Country: CO (occurrence: CO)
  Receive Date: 20210709
  Receipt Date: 20210709
  Transmission Date: 20211014
  Serious: Yes (Other)
  Sender: FDA-Public Use
  Company Number: CO-BIOGEN-2021BI01027231

PATIENT

DRUGS (1)
  1. SPINRAZA [Suspect]
     Active Substance: NUSINERSEN
     Indication: SPINAL MUSCULAR ATROPHY
     Route: 037

REACTIONS (3)
  - Irritability [Unknown]
  - Respiratory failure [Unknown]
  - Drug ineffective [Unknown]
